FAERS Safety Report 20720134 (Version 1)
Quarter: 2022Q2

REPORT INFORMATION
  Report Type: Spontaneous
  Country: PL (occurrence: PL)
  Receive Date: 20220418
  Receipt Date: 20220418
  Transmission Date: 20220721
  Serious: Yes (Other)
  Sender: FDA-Public Use
  Company Number: PL-002147023-NVSC2022PL074312

PATIENT
  Age: 62 Year
  Sex: Female

DRUGS (6)
  1. CYTARABINE [Suspect]
     Active Substance: CYTARABINE
     Indication: Product used for unknown indication
     Dosage: 100 MG/M2
     Route: 042
  2. MIDOSTAURIN [Suspect]
     Active Substance: MIDOSTAURIN
     Indication: Acute myeloid leukaemia
     Dosage: 50 MG, BID
     Route: 065
  3. VESANOID [Concomitant]
     Active Substance: TRETINOIN
     Indication: Acute promyelocytic leukaemia
     Route: 065
     Dates: start: 20211204, end: 20211216
  4. IDARUBICIN [Concomitant]
     Active Substance: IDARUBICIN
     Indication: Acute promyelocytic leukaemia
     Dosage: 12 MG/M2
     Route: 065
     Dates: start: 20211205
  5. IDARUBICIN [Concomitant]
     Active Substance: IDARUBICIN
     Dosage: 12 MG/M2
     Route: 065
     Dates: start: 20211207
  6. IDARUBICIN [Concomitant]
     Active Substance: IDARUBICIN
     Dosage: 12 MG/M2
     Route: 065
     Dates: start: 20211209

REACTIONS (1)
  - COVID-19 [Unknown]
